FAERS Safety Report 16213385 (Version 1)
Quarter: 2019Q2

REPORT INFORMATION
  Report Type: Spontaneous
  Country: US (occurrence: US)
  Receive Date: 20190418
  Receipt Date: 20190418
  Transmission Date: 20190711
  Serious: Yes (Hospitalization, Other)
  Sender: FDA-Public Use
  Company Number: US-SAOL THERAPEUTICS-2019SAO00112

PATIENT
  Sex: Female

DRUGS (2)
  1. COMPOUNDED BACLOFEN [Suspect]
     Active Substance: BACLOFEN
     Dosage: 96 ?G, \DAY
     Route: 037
  2. COMPOUNDED BACLOFEN [Suspect]
     Active Substance: BACLOFEN
     Indication: PARAPLEGIA
     Dosage: 900 ?G, \DAY
     Route: 037
     Dates: start: 2012

REACTIONS (4)
  - Blood creatine phosphokinase increased [Unknown]
  - Wound dehiscence [Recovered/Resolved]
  - Drug withdrawal syndrome [Not Recovered/Not Resolved]
  - Fat necrosis [Unknown]

NARRATIVE: CASE EVENT DATE: 2019
